FAERS Safety Report 12152542 (Version 1)
Quarter: 2016Q1

REPORT INFORMATION
  Report Type: Spontaneous
  Country: US (occurrence: US)
  Receive Date: 20160304
  Receipt Date: 20160304
  Transmission Date: 20160526
  Serious: No
  Sender: FDA-Public Use
  Company Number: US-AMGEN-USASP2015075807

PATIENT
  Age: 74 Year
  Sex: Female

DRUGS (1)
  1. SENSIPAR [Suspect]
     Active Substance: CINACALCET HYDROCHLORIDE
     Indication: PRODUCT USED FOR UNKNOWN INDICATION
     Dosage: UNK
     Route: 065
     Dates: start: 2015, end: 201506

REACTIONS (6)
  - Skin discolouration [Not Recovered/Not Resolved]
  - Malaise [Unknown]
  - Skin reaction [Recovering/Resolving]
  - Adverse reaction [Unknown]
  - Skin exfoliation [Unknown]
  - Effusion [Unknown]
